FAERS Safety Report 16733984 (Version 9)
Quarter: 2019Q4

REPORT INFORMATION
  Report Type: Report from Study
  Country: US (occurrence: US)
  Receive Date: 20190823
  Receipt Date: 20191128
  Transmission Date: 20200122
  Serious: Yes (Hospitalization)
  Sender: FDA-Public Use
  Company Number: PHEH2019US034671

PATIENT
  Sex: Female
  Weight: 112.02 kg

DRUGS (2)
  1. TADALAFIL. [Concomitant]
     Active Substance: TADALAFIL
     Indication: PRODUCT USED FOR UNKNOWN INDICATION
     Route: 065
  2. TREPROSTINIL. [Suspect]
     Active Substance: TREPROSTINIL
     Indication: PULMONARY ARTERIAL HYPERTENSION
     Dosage: 40 NG/KG/MIN, CONTINUOUS
     Route: 042
     Dates: start: 20190813

REACTIONS (13)
  - Migraine [Unknown]
  - Infusion site mass [Unknown]
  - Infusion site erythema [Unknown]
  - Pain in extremity [Unknown]
  - Myalgia [Unknown]
  - Dyspnoea [Not Recovered/Not Resolved]
  - Complication associated with device [Unknown]
  - Vascular device infection [Unknown]
  - Diarrhoea [Unknown]
  - Infusion site rash [Unknown]
  - Headache [Unknown]
  - Infusion site pruritus [Unknown]
  - Nausea [Unknown]
